FAERS Safety Report 17390794 (Version 4)
Quarter: 2021Q2

REPORT INFORMATION
  Report Type: Other
  Country: FR (occurrence: FR)
  Receive Date: 20200207
  Receipt Date: 20210617
  Transmission Date: 20210716
  Serious: Yes (Death, Hospitalization)
  Sender: FDA-Public Use
  Company Number: FR-ROCHE-2543850

PATIENT
  Age: 69 Year
  Sex: Female
  Weight: 56 kg

DRUGS (17)
  1. VENLAFAXINE [Concomitant]
     Active Substance: VENLAFAXINE HYDROCHLORIDE
     Indication: DEPRESSION
     Dates: start: 202001
  2. ATEZOLIZUMAB. [Suspect]
     Active Substance: ATEZOLIZUMAB
     Indication: NON-SMALL CELL LUNG CANCER METASTATIC
     Dosage: ON 04/DEC/2019, MOST RECENT DOSE OF ATEZOLIZUMAB WAS ADMINISTERED.
     Route: 042
     Dates: start: 20191204, end: 20191204
  3. BRICANYL [Concomitant]
     Active Substance: TERBUTALINE SULFATE
     Indication: DISEASE PROGRESSION
     Dates: start: 20200513, end: 202006
  4. PACLITAXEL. [Concomitant]
     Active Substance: PACLITAXEL
  5. METHOTREXATE. [Concomitant]
     Active Substance: METHOTREXATE
     Indication: RHEUMATOID ARTHRITIS
     Dates: start: 2016
  6. ATROVENT [Concomitant]
     Active Substance: IPRATROPIUM BROMIDE
     Indication: DISEASE PROGRESSION
     Dates: start: 20200513, end: 202006
  7. CARBOPLATINE [Concomitant]
     Active Substance: CARBOPLATIN
  8. CORTANCYL [Concomitant]
     Active Substance: PREDNISONE
     Indication: RHEUMATOID ARTHRITIS
     Dates: start: 20191204
  9. PRAZEPAM [Concomitant]
     Active Substance: PRAZEPAM
     Indication: DEPRESSION
     Dates: start: 202001
  10. GEMCITABINE. [Concomitant]
     Active Substance: GEMCITABINE
     Dates: start: 20200909, end: 20200930
  11. KETOPROFENE [Concomitant]
     Active Substance: KETOPROFEN
     Indication: RHEUMATOID ARTHRITIS
     Dates: start: 20191213
  12. FOLIC ACID. [Concomitant]
     Active Substance: FOLIC ACID
     Indication: PROPHYLAXIS
  13. AMOXICILLINE [Concomitant]
     Active Substance: AMOXICILLIN
     Indication: DISEASE PROGRESSION
     Dates: start: 20200513, end: 202005
  14. PEMETREXED. [Concomitant]
     Active Substance: PEMETREXED
     Dates: start: 20200212, end: 20200422
  15. DOCETAXEL. [Concomitant]
     Active Substance: DOCETAXEL
     Dates: start: 20200603, end: 20200729
  16. ATEZOLIZUMAB. [Suspect]
     Active Substance: ATEZOLIZUMAB
     Route: 042
     Dates: start: 20191226, end: 20191226
  17. PARACETAMOL [Concomitant]
     Active Substance: ACETAMINOPHEN
     Indication: RHEUMATOID ARTHRITIS
     Dosage: AS NEEDED
     Dates: start: 2016

REACTIONS (1)
  - Rheumatoid arthritis [Not Recovered/Not Resolved]

NARRATIVE: CASE EVENT DATE: 20191214
